FAERS Safety Report 8823478 (Version 2)
Quarter: 2012Q4

REPORT INFORMATION
  Report Type: 
  Country: US (occurrence: US)
  Receive Date: 20121003
  Receipt Date: 20121212
  Transmission Date: 20130627
  Serious: Yes (Congenital Anomaly, Other)
  Sender: FDA-Public Use
  Company Number: US-SHIRE-ALL1-2012-04605

PATIENT

DRUGS (3)
  1. 433 (CARBAMAZEPINE) [Suspect]
     Indication: PRODUCT USED FOR UNKNOWN INDICATION
     Dosage: 1000 mg, Unknown
     Route: 064
  2. PHENYTOIN [Suspect]
     Indication: PRODUCT USED FOR UNKNOWN INDICATION
     Dosage: 500 mg, Unknown
     Route: 064
  3. TOPIRAMATE [Suspect]
     Indication: PRODUCT USED FOR UNKNOWN INDICATION
     Dosage: 400 mg, Unknown
     Route: 064

REACTIONS (4)
  - Abortion induced [Unknown]
  - Multiple congenital abnormalities [Unknown]
  - Syndactyly [Unknown]
  - Exposure during pregnancy [Unknown]
